FAERS Safety Report 24997220 (Version 1)
Quarter: 2025Q1

REPORT INFORMATION
  Report Type: Report from Study
  Country: CA (occurrence: CA)
  Receive Date: 20250221
  Receipt Date: 20250221
  Transmission Date: 20250409
  Serious: Yes (Other)
  Sender: ABBVIE
  Company Number: CA-ABBVIE-6142516

PATIENT
  Sex: Male

DRUGS (2)
  1. LUPRON [Suspect]
     Active Substance: LEUPROLIDE ACETATE
     Indication: Prostate cancer
     Dosage: DOSAGE STRENGTH- 22.5 MG
     Route: 030
     Dates: start: 20110101
  2. CELECOXIB [Concomitant]
     Active Substance: CELECOXIB
     Indication: Analgesic therapy

REACTIONS (1)
  - Metastasis [Unknown]
